FAERS Safety Report 8404943-3 (Version None)
Quarter: 2012Q2

REPORT INFORMATION
  Report Type: 
  Country: None (occurrence: None)
  Receive Date: 20120601
  Receipt Date: 20120515
  Transmission Date: 20120825
  Serious: No
  Sender: FDA-Public Use
  Company Number: US-ASTRAZENECA-2012SE26751

PATIENT
  Age: 74 Year
  Sex: Female
  Weight: 65.3 kg

DRUGS (9)
  1. NEXIUM [Suspect]
     Indication: HIATUS HERNIA
     Route: 048
  2. ALKA SELTZER [Concomitant]
  3. PRILOSEC [Suspect]
     Route: 048
  4. MAGNESIUM HYDROXIDE TAB [Concomitant]
  5. MOTRIN [Concomitant]
     Indication: PAIN
  6. COLACE [Concomitant]
  7. NEXIUM [Suspect]
     Indication: GASTROOESOPHAGEAL REFLUX DISEASE
     Route: 048
  8. NEXIUM [Suspect]
     Route: 048
  9. AMITIZA [Concomitant]

REACTIONS (13)
  - MALAISE [None]
  - OESOPHAGITIS [None]
  - ASTHMA [None]
  - DYSPEPSIA [None]
  - NAUSEA [None]
  - DRUG DOSE OMISSION [None]
  - GASTROOESOPHAGEAL REFLUX DISEASE [None]
  - GASTROINTESTINAL DISORDER [None]
  - DRUG EFFECT DECREASED [None]
  - BACK INJURY [None]
  - CONSTIPATION [None]
  - HIATUS HERNIA [None]
  - PNEUMONIA [None]
